FAERS Safety Report 13127318 (Version 1)
Quarter: 2017Q1

REPORT INFORMATION
  Report Type: Spontaneous
  Country: US (occurrence: US)
  Receive Date: 20170118
  Receipt Date: 20170118
  Transmission Date: 20170428
  Serious: No
  Sender: FDA-Public Use
  Company Number: US-ROCHE-1849425

PATIENT
  Sex: Female

DRUGS (17)
  1. VESICARE [Concomitant]
     Active Substance: SOLIFENACIN SUCCINATE
  2. RITUXAN [Suspect]
     Active Substance: RITUXIMAB
     Indication: PRODUCT USED FOR UNKNOWN INDICATION
     Route: 065
  3. ASPIRIN. [Concomitant]
     Active Substance: ASPIRIN
  4. LOSARTAN. [Concomitant]
     Active Substance: LOSARTAN
  5. PANTOPRAZOLE [Concomitant]
     Active Substance: PANTOPRAZOLE SODIUM
  6. CELEBREX [Concomitant]
     Active Substance: CELECOXIB
  7. CYCLOBENZAPRINE [Concomitant]
     Active Substance: CYCLOBENZAPRINE
  8. METFORMIN [Concomitant]
     Active Substance: METFORMIN HYDROCHLORIDE
     Route: 065
  9. CLARITIN (UNITED STATES) [Concomitant]
  10. ACETAMINOPHEN. [Concomitant]
     Active Substance: ACETAMINOPHEN
  11. XELJANZ [Suspect]
     Active Substance: TOFACITINIB CITRATE
     Indication: RHEUMATOID ARTHRITIS
     Route: 048
     Dates: start: 20160930
  12. LYRICA [Concomitant]
     Active Substance: PREGABALIN
  13. OXYCODONE [Concomitant]
     Active Substance: OXYCODONE
  14. OXYCONTIN [Concomitant]
     Active Substance: OXYCODONE HYDROCHLORIDE
  15. VYTORIN [Concomitant]
     Active Substance: EZETIMIBE\SIMVASTATIN
  16. LEVETIRACETAM. [Concomitant]
     Active Substance: LEVETIRACETAM
  17. NEOMYCIN [Concomitant]
     Active Substance: NEOMYCIN

REACTIONS (8)
  - Abdominal pain upper [Recovering/Resolving]
  - Drug hypersensitivity [Unknown]
  - Decreased appetite [Recovered/Resolved]
  - Peripheral swelling [Unknown]
  - Diarrhoea [Recovering/Resolving]
  - Arthralgia [Unknown]
  - Dizziness [Recovering/Resolving]
  - Nausea [Recovering/Resolving]
